FAERS Safety Report 8260166-2 (Version None)
Quarter: 2012Q2

REPORT INFORMATION
  Report Type: 
  Country: None (occurrence: None)
  Receive Date: 20120404
  Receipt Date: 20120329
  Transmission Date: 20120825
  Serious: Yes (Other)
  Sender: FDA-Public Use
  Company Number: BR-JNJFOC-20120311938

PATIENT
  Age: 36 Year
  Sex: Female
  Weight: 45.5 kg

DRUGS (1)
  1. ORTHO EVRA [Suspect]
     Indication: CONTRACEPTION
     Route: 062
     Dates: start: 20110730, end: 20120301

REACTIONS (14)
  - PHOTOSENSITIVITY REACTION [None]
  - HAIR GROWTH ABNORMAL [None]
  - ACNE [None]
  - DIZZINESS [None]
  - CHROMATURIA [None]
  - SKIN DISCOLOURATION [None]
  - OEDEMA PERIPHERAL [None]
  - BLISTER [None]
  - ASPARTATE AMINOTRANSFERASE INCREASED [None]
  - ALANINE AMINOTRANSFERASE INCREASED [None]
  - DERMATITIS ALLERGIC [None]
  - HEPATIC ENZYME ABNORMAL [None]
  - SKIN IRRITATION [None]
  - HEADACHE [None]
